FAERS Safety Report 6071495-5 (Version None)
Quarter: 2009Q1

REPORT INFORMATION
  Report Type: 
  Country: None (occurrence: None)
  Receive Date: 20090209
  Receipt Date: 20090209
  Transmission Date: 20090719
  Serious: No
  Sender: FDA-Public Use
  Company Number: None

PATIENT
  Sex: Female
  Weight: 63.5036 kg

DRUGS (2)
  1. BALSALAZIDE [Suspect]
     Indication: COLITIS ULCERATIVE
     Dosage: 2250 MG 3 TIMES DAILY
     Dates: start: 20081001
  2. TYLENOL [Concomitant]

REACTIONS (1)
  - ALOPECIA [None]
